FAERS Safety Report 15541590 (Version 2)
Quarter: 2018Q4

REPORT INFORMATION
  Report Type: Spontaneous
  Country: JP (occurrence: JP)
  Receive Date: 20181023
  Receipt Date: 20181127
  Transmission Date: 20190205
  Serious: No
  Sender: FDA-Public Use
  Company Number: JP-GLAXOSMITHKLINE-JP2018JPN128417

PATIENT
  Age: 43 Year
  Sex: Female

DRUGS (2)
  1. LENDORMIN [Concomitant]
     Active Substance: BROTIZOLAM
     Dosage: UNK
  2. LAMICTAL [Suspect]
     Active Substance: LAMOTRIGINE
     Indication: BIPOLAR DISORDER RELAPSE PROPHYLAXIS
     Dosage: 50 MG, 1D
     Route: 048

REACTIONS (1)
  - Intercepted product prescribing error [Unknown]
